FAERS Safety Report 13924658 (Version 2)
Quarter: 2017Q4

REPORT INFORMATION
  Report Type: Report from Study
  Country: US (occurrence: US)
  Receive Date: 20170831
  Receipt Date: 20171016
  Transmission Date: 20180320
  Serious: Yes (Hospitalization)
  Sender: FDA-Public Use
  Company Number: US-BIOGEN-2017BI00451527

PATIENT
  Age: 46 Year
  Sex: Female

DRUGS (1)
  1. TECFIDERA [Suspect]
     Active Substance: DIMETHYL FUMARATE
     Indication: MULTIPLE SCLEROSIS
     Route: 048
     Dates: start: 2013

REACTIONS (6)
  - Back pain [Unknown]
  - Spinal operation [Unknown]
  - Multiple sclerosis relapse [Not Recovered/Not Resolved]
  - Insomnia [Unknown]
  - Loss of control of legs [Unknown]
  - Anxiety [Unknown]

NARRATIVE: CASE EVENT DATE: 20170815
